FAERS Safety Report 10197298 (Version 1)
Quarter: 2014Q2

REPORT INFORMATION
  Report Type: Spontaneous
  Country: RU (occurrence: RU)
  Receive Date: 20140527
  Receipt Date: 20140527
  Transmission Date: 20141212
  Serious: Yes (Other)
  Sender: FDA-Public Use
  Company Number: RU-VIIV HEALTHCARE LIMITED-B0996609A

PATIENT
  Sex: Female

DRUGS (5)
  1. COMBIVIR [Suspect]
     Indication: HIV INFECTION
     Route: 065
  2. ABACAVIR [Suspect]
     Indication: HIV INFECTION
     Route: 065
  3. STOCRIN [Suspect]
     Indication: HIV INFECTION
     Route: 065
  4. ISENTRESS [Suspect]
     Indication: HIV INFECTION
     Route: 065
  5. REYATAZ [Suspect]
     Indication: HIV INFECTION
     Route: 065

REACTIONS (6)
  - Altered state of consciousness [Recovered/Resolved]
  - Hypersensitivity [Recovered/Resolved]
  - Rash [Recovered/Resolved]
  - Decreased appetite [Not Recovered/Not Resolved]
  - Fat redistribution [Not Recovered/Not Resolved]
  - Jaundice [Unknown]
